FAERS Safety Report 9261925 (Version 1)
Quarter: 2013Q2

REPORT INFORMATION
  Report Type: Spontaneous
  Country: US (occurrence: US)
  Receive Date: 20130429
  Receipt Date: 20130429
  Transmission Date: 20140414
  Serious: Yes (Hospitalization)
  Sender: FDA-Public Use
  Company Number: US-ASTRAZENECA-2013SE27837

PATIENT
  Age: 70 Year
  Sex: Male

DRUGS (4)
  1. BRILINTA [Suspect]
     Indication: ACUTE CORONARY SYNDROME
     Dosage: LOADING DOSE
     Route: 048
     Dates: start: 20130401
  2. BRILINTA [Suspect]
     Indication: ACUTE CORONARY SYNDROME
     Dosage: MAINTENANCE  DOSE
     Route: 048
     Dates: start: 20130402
  3. ASPIRIN [Concomitant]
     Route: 048
     Dates: start: 20130401
  4. ASPIRIN [Concomitant]
     Route: 048
     Dates: start: 20130402

REACTIONS (1)
  - Cerebellar haemorrhage [Unknown]
